FAERS Safety Report 20698531 (Version 1)
Quarter: 2022Q2

REPORT INFORMATION
  Report Type: Spontaneous
  Country: AR (occurrence: AR)
  Receive Date: 20220412
  Receipt Date: 20220412
  Transmission Date: 20220720
  Serious: Yes (Death)
  Sender: FDA-Public Use
  Company Number: AR-BoehringerIngelheim-2022-BI-164661

PATIENT
  Age: 72 Year
  Sex: Female

DRUGS (2)
  1. OFEV [Suspect]
     Active Substance: NINTEDANIB
     Indication: Interstitial lung disease
     Route: 065
     Dates: start: 20191129
  2. OFEV [Suspect]
     Active Substance: NINTEDANIB
     Indication: Sjogren^s syndrome

REACTIONS (2)
  - Pulmonary function test decreased [Fatal]
  - Disease progression [Fatal]

NARRATIVE: CASE EVENT DATE: 20191101
